FAERS Safety Report 21860944 (Version 3)
Quarter: 2023Q1

REPORT INFORMATION
  Report Type: Spontaneous
  Country: US (occurrence: US)
  Receive Date: 20230113
  Receipt Date: 20230321
  Transmission Date: 20230418
  Serious: Yes (Hospitalization, Other)
  Sender: FDA-Public Use
  Company Number: US-PARI RESPIRATORY EQUIPMENT, INC.-2023PAR00002

PATIENT
  Sex: Male
  Weight: 82.086 kg

DRUGS (21)
  1. KITABIS PAK [Suspect]
     Active Substance: TOBRAMYCIN
     Indication: Pneumonia pseudomonal
     Dosage: 300 MG, 2X/DAY, ON FOR ONE MONTH, THEN OFF FOR ONE MONTH
     Dates: start: 2022, end: 2022
  2. KITABIS PAK [Suspect]
     Active Substance: TOBRAMYCIN
     Indication: Bronchiectasis
     Dosage: 300 MG, 2X/DAY, FOR 28 DAYS ON, OFF FOR 28 DAYS
     Dates: start: 202210
  3. LASIX [Suspect]
     Active Substance: FUROSEMIDE
     Dosage: 1 TABLET (40 MG), IN THE MORNING
     Route: 048
     Dates: start: 20221119, end: 20221126
  4. LASIX [Suspect]
     Active Substance: FUROSEMIDE
     Dosage: 20 MG, 1X/DAY IN THE MORNING
     Route: 048
     Dates: start: 20221127, end: 20221231
  5. LASIX [Suspect]
     Active Substance: FUROSEMIDE
     Dosage: 40 MG FOR SWELLING
     Route: 048
     Dates: start: 20230101, end: 20230101
  6. LASIX [Suspect]
     Active Substance: FUROSEMIDE
     Dosage: 20 MG, 1X/DAY IN THE MORNING
     Route: 048
     Dates: start: 20230103
  7. METOPROLOL TARTRATE [Concomitant]
     Active Substance: METOPROLOL TARTRATE
     Dosage: 75 MG, IN THE MORNING AND BEFORE BEDTIME
     Route: 048
     Dates: end: 20221126
  8. METOPROLOL TARTRATE [Concomitant]
     Active Substance: METOPROLOL TARTRATE
     Dosage: 1 TABLET (75 MG), IN THE MORNING AND BEFORE BEDTIME
     Dates: start: 20221126
  9. TOPIRAMATE [Concomitant]
     Active Substance: TOPIRAMATE
     Dosage: 25 MG, AT BEDTIME
     Route: 048
  10. PREDNISONE [Concomitant]
     Active Substance: PREDNISONE
     Dosage: ^1 MG^ IN THE MORNING
     Dates: end: 20221126
  11. PREDNISONE [Concomitant]
     Active Substance: PREDNISONE
     Dosage: 5 MG, 1X/DAY IN THE MORNING FOR 10 DAYS
     Route: 048
     Dates: start: 20221127, end: 202301
  12. PREDNISONE [Concomitant]
     Active Substance: PREDNISONE
     Dosage: 2.5 MG, 1X/DAY IN THE MORNING
     Dates: start: 202301
  13. 10 UNSPECIFIED MEDICATIONS [Concomitant]
  14. ELIQUIS [Concomitant]
     Active Substance: APIXABAN
     Dosage: 1 TABLET (5 MG), 2X/DAY
     Route: 048
     Dates: end: 20230120
  15. ELIQUIS [Concomitant]
     Active Substance: APIXABAN
     Dosage: 1 TABLET (2.5 MG), 2X/DAY
     Dates: start: 20230121
  16. BUSPIRONE [Concomitant]
     Active Substance: BUSPIRONE HYDROCHLORIDE
     Dosage: 1 TABLET (5 MG), 2X/DAY
     Route: 048
  17. CETIRIZINE HYDROCHLORIDE [Concomitant]
     Active Substance: CETIRIZINE HYDROCHLORIDE
     Dosage: 1 TABLET (10 MG), 1X/DAY
     Route: 048
     Dates: start: 20220614
  18. DILTIAZEM [Concomitant]
     Active Substance: DILTIAZEM
     Dosage: 1 CAPSULE (180 MG), 1X/DAY
     Route: 048
  19. DALIRESP [Concomitant]
     Active Substance: ROFLUMILAST
     Dosage: 500 ?G, 1X/DAY
     Route: 048
  20. KLOR-CON M10 [Concomitant]
     Active Substance: POTASSIUM CHLORIDE
     Dosage: 10 MEQ, 1X/DAY IN THE MORNING
     Route: 048
  21. YUPELRI [Concomitant]
     Active Substance: REVEFENACIN
     Dosage: 3 ML (175 ?G TOTAL) BY NEBULIZATION, IN THE MORNING
     Dates: start: 20230110

REACTIONS (17)
  - Infective pulmonary exacerbation of cystic fibrosis [Unknown]
  - Cystic fibrosis [Unknown]
  - Acute respiratory failure [Recovering/Resolving]
  - Respiratory failure [Recovering/Resolving]
  - Chest pain [Recovering/Resolving]
  - Chronic obstructive pulmonary disease [Recovering/Resolving]
  - Respiratory acidosis [Recovering/Resolving]
  - Acute kidney injury [Recovered/Resolved]
  - Pneumonia pseudomonal [Recovering/Resolving]
  - Encephalopathy [Recovering/Resolving]
  - Bronchitis [Recovering/Resolving]
  - Nausea [Recovered/Resolved]
  - Vomiting [Recovered/Resolved]
  - Obesity [Not Recovered/Not Resolved]
  - General physical health deterioration [Not Recovered/Not Resolved]
  - Product use issue [Recovered/Resolved]
  - Drug ineffective for unapproved indication [Not Recovered/Not Resolved]

NARRATIVE: CASE EVENT DATE: 20220101
